FAERS Safety Report 5332749-0 (Version None)
Quarter: 2007Q2

REPORT INFORMATION
  Report Type: 
  Country: None (occurrence: None)
  Receive Date: 20070523
  Receipt Date: 20070516
  Transmission Date: 20071010
  Serious: Yes (Other)
  Sender: FDA-Public Use
  Company Number: DE-MERCK-0705DEU00094

PATIENT
  Age: 45 Year
  Sex: Male

DRUGS (1)
  1. ZOCOR [Suspect]
     Indication: HYPERCHOLESTEROLAEMIA
     Route: 048

REACTIONS (2)
  - DIPLOPIA [None]
  - MYOCARDIAL INFARCTION [None]
